FAERS Safety Report 5535286-3 (Version None)
Quarter: 2007Q4

REPORT INFORMATION
  Report Type: 
  Country: None (occurrence: None)
  Receive Date: 20071204
  Receipt Date: 20071116
  Transmission Date: 20080405
  Serious: Yes (Hospitalization, Other)
  Sender: FDA-Public Use
  Company Number: 2007AP001326

PATIENT
  Age: 69 Year
  Sex: Male

DRUGS (6)
  1. TRAZODONE HYDROCHLORIDE [Suspect]
     Indication: INSOMNIA
     Dosage: 50 MG;HS;PO
     Route: 048
  2. SERTRALINE [Suspect]
     Indication: INSOMNIA
     Dosage: 25 MG;QD;150 MG;QD;
  3. SERTRALINE [Suspect]
     Indication: PSYCHOTIC DISORDER
     Dosage: 25 MG;QD;150 MG;QD;
  4. VENLAFAXINE HCL [Concomitant]
  5. METOPROLOL [Concomitant]
  6. RISPERIDONE [Suspect]
     Indication: DEPRESSION
     Dosage: 0.5 MG;BID;3 MG;QD;

REACTIONS (2)
  - DRUG INTERACTION [None]
  - SEROTONIN SYNDROME [None]
